FAERS Safety Report 4498771-1 (Version None)
Quarter: 2004Q4

REPORT INFORMATION
  Report Type: 
  Country: None (occurrence: None)
  Receive Date: 20041109
  Receipt Date: 20041109
  Transmission Date: 20050328
  Serious: Yes (Hospitalization)
  Sender: FDA-Public Use
  Company Number: None

PATIENT
  Age: 53 Year
  Sex: Male
  Weight: 58.1 kg

DRUGS (12)
  1. CARBOPLATIN [Suspect]
     Indication: NON-SMALL CELL LUNG CANCER
     Dosage: VARIOUS, VARIOUS, INTRAVEN
     Route: 042
  2. PACLITAXEL [Suspect]
     Dosage: 248 MGIV
     Route: 042
     Dates: start: 20040217, end: 20040217
  3. SILDENAFIL CITRATE [Concomitant]
  4. BUSPIRONE HCL [Concomitant]
  5. DM 10/GUAIFENESIN [Concomitant]
  6. GATIFLOXACIN [Concomitant]
  7. OMEPRAZOLE [Concomitant]
  8. CEPHALEXIN [Concomitant]
  9. QUETIAPINE FUMARATE [Concomitant]
  10. SENNOSIDES [Concomitant]
  11. NAPROXEN [Concomitant]
  12. GUAIFENESIN [Concomitant]

REACTIONS (1)
  - NEUTROPENIA [None]
